FAERS Safety Report 15782385 (Version 3)
Quarter: 2019Q2

REPORT INFORMATION
  Report Type: Report from Study
  Country: GB (occurrence: GB)
  Receive Date: 20190102
  Receipt Date: 20190514
  Transmission Date: 20190711
  Serious: Yes (Other)
  Sender: FDA-Public Use
  Company Number: GB-JNJFOC-20181128693

PATIENT
  Sex: Female
  Weight: 94 kg

DRUGS (1)
  1. STELARA [Suspect]
     Active Substance: USTEKINUMAB
     Indication: PSORIASIS
     Route: 058
     Dates: start: 20140818

REACTIONS (5)
  - Lower respiratory tract infection [Unknown]
  - Knee arthroplasty [Unknown]
  - Arthritis [Unknown]
  - Psoriasis [Recovering/Resolving]
  - Product dose omission [Unknown]
